FAERS Safety Report 14153776 (Version 1)
Quarter: 2017Q4

REPORT INFORMATION
  Report Type: Spontaneous
  Country: US (occurrence: US)
  Receive Date: 20171102
  Receipt Date: 20171102
  Transmission Date: 20180321
  Serious: No
  Sender: FDA-Public Use
  Company Number: US-SA-2017SA191503

PATIENT
  Age: 73 Year
  Sex: Male

DRUGS (4)
  1. CRESTOR [Concomitant]
     Active Substance: ROSUVASTATIN CALCIUM
  2. PRALUENT [Suspect]
     Active Substance: ALIROCUMAB
     Indication: BLOOD CHOLESTEROL INCREASED
     Route: 058
     Dates: start: 20170101
  3. ALIROCUMAB PREFILLED PEN [Suspect]
     Active Substance: ALIROCUMAB
     Indication: BLOOD CHOLESTEROL INCREASED
     Dates: start: 20170101
  4. ISOSORBIDE. [Concomitant]
     Active Substance: ISOSORBIDE
     Dates: end: 201707

REACTIONS (2)
  - Dizziness [Not Recovered/Not Resolved]
  - Low density lipoprotein decreased [Recovering/Resolving]

NARRATIVE: CASE EVENT DATE: 2017
